FAERS Safety Report 4540886-3 (Version None)
Quarter: 2004Q4

REPORT INFORMATION
  Report Type: 
  Country: None (occurrence: None)
  Receive Date: 20041228
  Receipt Date: 20041213
  Transmission Date: 20050328
  Serious: Yes (Disabling)
  Sender: FDA-Public Use
  Company Number: 2004AP04643

PATIENT
  Age: 60 Year
  Sex: Female
  Weight: 45.1 kg

DRUGS (12)
  1. MARCAINE [Suspect]
     Indication: EPIDURAL ANAESTHESIA
     Dosage: 2 ML/HR AT INTERSPACE OF TH 5-6
     Dates: start: 20040524, end: 20040608
  2. MARCAINE [Suspect]
     Indication: HERPES ZOSTER
     Dosage: 2 ML/HR AT INTERSPACE OF TH 5-6
     Dates: start: 20040524, end: 20040608
  3. TRYPTANOL [Suspect]
     Indication: DYSTHYMIC DISORDER
     Dosage: 10 MG DAILY PO
     Route: 048
     Dates: start: 20040525, end: 20040607
  4. CARBOCAIN [Concomitant]
  5. KENACORT-A [Concomitant]
  6. VOLTAREN [Concomitant]
  7. THEOLONG [Concomitant]
  8. FLUTICASONE PROPIONATE [Concomitant]
  9. NEUROVITAN [Concomitant]
  10. MARZULENE S [Concomitant]
  11. PURSENNID [Concomitant]
  12. XYLOCAINE [Concomitant]

REACTIONS (11)
  - ALANINE AMINOTRANSFERASE INCREASED [None]
  - ASPARTATE AMINOTRANSFERASE INCREASED [None]
  - BLOOD PRESSURE DECREASED [None]
  - DRUG HYPERSENSITIVITY [None]
  - GAMMA-GLUTAMYLTRANSFERASE INCREASED [None]
  - LIVER DISORDER [None]
  - NAUSEA [None]
  - PAIN EXACERBATED [None]
  - PYREXIA [None]
  - TREMOR [None]
  - VOMITING [None]
